FAERS Safety Report 9485840 (Version 1)
Quarter: 2013Q3

REPORT INFORMATION
  Report Type: Spontaneous
  Country: US (occurrence: None)
  Receive Date: 20130827
  Receipt Date: 20130827
  Transmission Date: 20140515
  Serious: Yes (Hospitalization)
  Sender: FDA-Public Use
  Company Number: None

PATIENT
  Age: 58 Year
  Sex: Male
  Weight: 83.5 kg

DRUGS (2)
  1. NEFAZODONE [Suspect]
     Indication: DEPRESSION
     Route: 048
     Dates: end: 20110806
  2. NEFAZODONE [Suspect]
     Indication: HYPERLIPIDAEMIA
     Route: 048
     Dates: end: 20110806

REACTIONS (1)
  - Myopathy [None]
